FAERS Safety Report 20443060 (Version 2)
Quarter: 2022Q1

REPORT INFORMATION
  Report Type: Spontaneous
  Country: US (occurrence: US)
  Receive Date: 20220208
  Receipt Date: 20220329
  Transmission Date: 20220423
  Serious: Yes (Other)
  Sender: FDA-Public Use
  Company Number: US-JNJFOC-20220207627

PATIENT
  Age: 74 Year
  Sex: Male

DRUGS (2)
  1. XARELTO [Suspect]
     Active Substance: RIVAROXABAN
     Indication: Cardiac disorder
     Route: 048
     Dates: start: 20210614
  2. XARELTO [Suspect]
     Active Substance: RIVAROXABAN
     Indication: Anticoagulant therapy

REACTIONS (5)
  - Pulmonary oedema [Recovered/Resolved]
  - Surgery [Unknown]
  - Abdominal distension [Unknown]
  - Peripheral swelling [Unknown]
  - Wound drainage [Unknown]

NARRATIVE: CASE EVENT DATE: 20211022
